FAERS Safety Report 26015175 (Version 1)
Quarter: 2025Q4

REPORT INFORMATION
  Report Type: Spontaneous
  Country: IN (occurrence: IN)
  Receive Date: 20251109
  Receipt Date: 20251109
  Transmission Date: 20260118
  Serious: Yes (Other)
  Sender: SOMERSET THERAPEUTICS, LLC
  Company Number: IN-MIT-25-75-IN-2025-SOM-LIT-00076

PATIENT
  Age: 54 Month
  Sex: Male

DRUGS (1)
  1. DICYCLOMINE HYDROCHLORIDE [Suspect]
     Active Substance: DICYCLOMINE HYDROCHLORIDE
     Indication: Abdominal pain
     Route: 065

REACTIONS (4)
  - Substance-induced psychotic disorder [Recovering/Resolving]
  - Hallucination, visual [Recovering/Resolving]
  - Irritability [Recovering/Resolving]
  - Product use in unapproved indication [Unknown]
